FAERS Safety Report 4295320-8 (Version None)
Quarter: 2004Q1

REPORT INFORMATION
  Report Type: 
  Country: None (occurrence: None)
  Receive Date: 20040216
  Receipt Date: 20030603
  Transmission Date: 20041129
  Serious: No
  Sender: FDA-Public Use
  Company Number: US-GLAXOSMITHKLINE-A0411038A

PATIENT
  Age: 14 Year
  Sex: Male

DRUGS (6)
  1. LAMICTAL [Suspect]
     Dosage: 50MG TWICE PER DAY
     Route: 048
     Dates: start: 20021201
  2. CLONIDINE [Concomitant]
  3. GEODON [Concomitant]
  4. PREVACID [Concomitant]
  5. REMERON [Concomitant]
  6. DDAVP [Concomitant]

REACTIONS (4)
  - ABNORMAL DREAMS [None]
  - AGGRESSION [None]
  - PSYCHOTIC DISORDER [None]
  - SLEEP DISORDER [None]
